FAERS Safety Report 7378796-9 (Version None)
Quarter: 2011Q1

REPORT INFORMATION
  Report Type: 
  Country: None (occurrence: None)
  Receive Date: 20110328
  Receipt Date: 20110308
  Transmission Date: 20110831
  Serious: Yes (Other)
  Sender: FDA-Public Use
  Company Number: PHHY2010CA05217

PATIENT
  Sex: Female
  Weight: 60 kg

DRUGS (9)
  1. EVISTA [Concomitant]
     Dosage: 670 MG DAILY
  2. VITAMIN D [Concomitant]
     Dosage: 1000 IU, QD
  3. ACLASTA/ZOLEDRONATE [Suspect]
     Indication: OSTEOPOROSIS
     Dosage: 5 MG/100 ML, YEARLY
     Route: 042
     Dates: start: 20090915
  4. ACLASTA/ZOLEDRONATE [Suspect]
     Dosage: 5 MG/100 ML, YEARLY
     Route: 042
     Dates: start: 20100908
  5. MIACALCIN [Concomitant]
  6. FORTEO [Concomitant]
  7. CALCIUM [Concomitant]
     Dosage: 600 MG, BID
     Dates: start: 20010101
  8. HORMONES [Concomitant]
  9. DIDROCAL [Concomitant]
     Dosage: 400 MG DAILY

REACTIONS (2)
  - WRIST FRACTURE [None]
  - FALL [None]
